FAERS Safety Report 13709951 (Version 1)
Quarter: 2017Q2

REPORT INFORMATION
  Report Type: Spontaneous
  Country: HK (occurrence: US)
  Receive Date: 20170630
  Receipt Date: 20170630
  Transmission Date: 20170830
  Serious: Yes (Hospitalization)
  Sender: FDA-Public Use
  Company Number: None

PATIENT
  Age: 42 Year
  Sex: Male
  Weight: 102.2 kg

DRUGS (4)
  1. CISPLATIN. [Suspect]
     Active Substance: CISPLATIN
     Dates: end: 20170531
  2. MEFENAMIC ACID (POSTAN) [Concomitant]
  3. METFORMIN HCL [Concomitant]
     Active Substance: METFORMIN HYDROCHLORIDE
  4. LOSARTAN POTASSIUM. [Concomitant]
     Active Substance: LOSARTAN POTASSIUM

REACTIONS (8)
  - Nephrosclerosis [None]
  - Dizziness [None]
  - Blood glucose decreased [None]
  - Diabetic nephropathy [None]
  - Hyperhidrosis [None]
  - Acute kidney injury [None]
  - Hypertensive nephropathy [None]
  - Blood creatinine increased [None]

NARRATIVE: CASE EVENT DATE: 20170602
